FAERS Safety Report 16240702 (Version 4)
Quarter: 2019Q2

REPORT INFORMATION
  Report Type: Spontaneous
  Country: US (occurrence: US)
  Receive Date: 20190425
  Receipt Date: 20190621
  Transmission Date: 20190711
  Serious: No
  Sender: FDA-Public Use
  Company Number: US-ACTELION-A-US2019-188301

PATIENT
  Sex: Female

DRUGS (6)
  1. UPTRAVI [Suspect]
     Active Substance: SELEXIPAG
     Dosage: 400 MCG, BID
     Route: 048
     Dates: start: 20190506
  2. UPTRAVI [Suspect]
     Active Substance: SELEXIPAG
     Dosage: 200 MCG, QAM/400 MCG PM
     Route: 048
     Dates: start: 20190309
  3. BUSPIRONE [Concomitant]
     Active Substance: BUSPIRONE HYDROCHLORIDE
  4. UPTRAVI [Suspect]
     Active Substance: SELEXIPAG
     Dosage: 400MCG IN AM/600MCG IN THE EVENING
     Route: 048
  5. UPTRAVI [Suspect]
     Active Substance: SELEXIPAG
     Indication: PULMONARY ARTERIAL HYPERTENSION
     Dosage: 200 MCG, BID
     Route: 048
     Dates: start: 20190311
  6. FLOVENT [Concomitant]
     Active Substance: FLUTICASONE PROPIONATE

REACTIONS (12)
  - Decreased appetite [Unknown]
  - Anxiety [Unknown]
  - Musculoskeletal pain [Unknown]
  - Dyspnoea exertional [Unknown]
  - Anal incontinence [Unknown]
  - Arthralgia [Unknown]
  - Abdominal pain upper [Unknown]
  - Palpitations [Unknown]
  - Oedema [Unknown]
  - Headache [Unknown]
  - Diarrhoea [Not Recovered/Not Resolved]
  - Myalgia [Unknown]
